FAERS Safety Report 17740094 (Version 1)
Quarter: 2020Q2

REPORT INFORMATION
  Report Type: Spontaneous
  Country: US (occurrence: US)
  Receive Date: 20200504
  Receipt Date: 20200504
  Transmission Date: 20200714
  Serious: Yes (Hospitalization)
  Sender: FDA-Public Use
  Company Number: US-HIKMA PHARMACEUTICALS USA INC.-US-H14001-20-02045

PATIENT
  Sex: Female

DRUGS (6)
  1. LEVETIRACETAM. [Suspect]
     Active Substance: LEVETIRACETAM
     Indication: SEIZURE PROPHYLAXIS
     Route: 065
  2. TOPIRAMATE. [Concomitant]
     Active Substance: TOPIRAMATE
     Indication: SEIZURE PROPHYLAXIS
     Route: 065
  3. NALOXONE [Concomitant]
     Active Substance: NALOXONE
     Route: 042
  4. HEROIN [Concomitant]
     Active Substance: DIAMORPHINE
     Indication: PRODUCT USED FOR UNKNOWN INDICATION
     Route: 042
  5. NALOXONE [Concomitant]
     Active Substance: NALOXONE
     Indication: RESPIRATORY FAILURE
     Route: 045
  6. LORAZEPAM. [Concomitant]
     Active Substance: LORAZEPAM
     Indication: AFFECT LABILITY
     Route: 065

REACTIONS (3)
  - Condition aggravated [Recovering/Resolving]
  - Acute psychosis [Unknown]
  - Leukoencephalopathy [Unknown]
